FAERS Safety Report 5619401-9 (Version None)
Quarter: 2008Q1

REPORT INFORMATION
  Report Type: 
  Country: None (occurrence: None)
  Receive Date: 20080114
  Receipt Date: 20070803
  Transmission Date: 20080703
  Serious: Yes (Hospitalization)
  Sender: FDA-Public Use
  Company Number: 2007BH006810

PATIENT
  Age: 33 Year
  Sex: Female
  Weight: 218.1802 kg

DRUGS (4)
  1. VANCOMYCIN HCL [Suspect]
     Indication: CELLULITIS
     Dosage: 1200 MG;2X A DAY;IV
     Route: 042
     Dates: start: 20070623, end: 20070628
  2. ZESTRIL [Suspect]
     Indication: DRUG USE FOR UNKNOWN INDICATION
     Dosage: 20 MG,EVERY DAY;PO
     Route: 048
     Dates: end: 20070628
  3. NAPROSYN [Suspect]
     Indication: CELLULITIS
     Dosage: 500 MG;2X A DAY;PO
     Route: 048
     Dates: start: 20070623, end: 20070628
  4. LASIX [Concomitant]

REACTIONS (1)
  - RENAL FAILURE ACUTE [None]
